FAERS Safety Report 7464127-2 (Version None)
Quarter: 2011Q2

REPORT INFORMATION
  Report Type: 
  Country: None (occurrence: None)
  Receive Date: 20110506
  Receipt Date: 20101026
  Transmission Date: 20111010
  Serious: No
  Sender: FDA-Public Use
  Company Number: US-AMGEN INC.-USASP2010000149

PATIENT
  Age: 45 Year
  Sex: Male

DRUGS (1)
  1. ENBREL [Suspect]
     Indication: RHEUMATOID ARTHRITIS
     Dates: start: 20090810

REACTIONS (4)
  - ARTHRALGIA [None]
  - RHEUMATOID ARTHRITIS [None]
  - MOBILITY DECREASED [None]
  - PERIPHERAL COLDNESS [None]
